FAERS Safety Report 25867866 (Version 1)
Quarter: 2025Q4

REPORT INFORMATION
  Report Type: Spontaneous
  Country: GB (occurrence: GB)
  Receive Date: 20251001
  Receipt Date: 20251001
  Transmission Date: 20260117
  Serious: Yes (Other)
  Sender: LEGACY PHARMACEUTICAL PACKAGING
  Company Number: GB-LEGACY PHARMA INC. SEZC-LGP202509-000263

PATIENT
  Age: 15 Year
  Sex: Male

DRUGS (2)
  1. AZATHIOPRINE [Suspect]
     Active Substance: AZATHIOPRINE
     Indication: Crohn^s disease
     Dosage: 25 MILLIGRAM, DAILY
     Route: 065
  2. AZATHIOPRINE [Suspect]
     Active Substance: AZATHIOPRINE
     Dosage: 62.5 MILLIGRAM, DAILY
     Route: 065

REACTIONS (6)
  - Pterygium [Unknown]
  - Photosensitivity reaction [Unknown]
  - Visual acuity reduced [Unknown]
  - Astigmatism [Unknown]
  - Eye disorder [Unknown]
  - Product use in unapproved indication [Unknown]
